FAERS Safety Report 9701434 (Version 2)
Quarter: 2013Q4

REPORT INFORMATION
  Report Type: Spontaneous
  Country: US (occurrence: US)
  Receive Date: 20131121
  Receipt Date: 20131121
  Transmission Date: 20140711
  Serious: Yes (Other)
  Sender: FDA-Public Use
  Company Number: US-GILEAD-2008-0016815

PATIENT
  Age: 73 Year
  Sex: Male

DRUGS (10)
  1. LETAIRIS [Suspect]
     Indication: PULMONARY HYPERTENSION
     Route: 048
     Dates: start: 20080428, end: 20080603
  2. WARFARIN [Concomitant]
     Route: 048
  3. DILTIAZEM XR [Concomitant]
     Route: 048
  4. HYDROCHLOROT [Concomitant]
     Route: 048
  5. FUROSEMIDE [Concomitant]
     Route: 048
  6. ALLOPURINOL [Concomitant]
     Route: 048
  7. PROPRANOLOL [Concomitant]
     Route: 048
  8. KLOR-CON [Concomitant]
     Route: 048
  9. AVANDARYL [Concomitant]
     Route: 048
  10. DIOVAN [Concomitant]
     Route: 048

REACTIONS (6)
  - Dyspnoea [Recovered/Resolved]
  - Oedema peripheral [Recovered/Resolved]
  - Fatigue [Recovering/Resolving]
  - Weight increased [Recovering/Resolving]
  - Swelling [Recovering/Resolving]
  - Constipation [Recovering/Resolving]
